FAERS Safety Report 4558515-1 (Version None)
Quarter: 2005Q1

REPORT INFORMATION
  Report Type: 
  Country: None (occurrence: None)
  Receive Date: 20050119
  Receipt Date: 20050110
  Transmission Date: 20050727
  Serious: Yes (Hospitalization)
  Sender: FDA-Public Use
  Company Number: K200401821

PATIENT
  Age: 72 Year
  Sex: Male

DRUGS (9)
  1. ALTACE [Suspect]
     Indication: PROPHYLAXIS
     Dates: start: 20030218, end: 20041103
  2. PLACEBO [Suspect]
     Indication: PROPHYLAXIS
     Dates: start: 20030218, end: 20041103
  3. SIMVASTATIN [Suspect]
     Dates: end: 20040101
  4. EZETIMIBE                     (EZETIMIBE) [Suspect]
     Dates: end: 20040101
  5. ACEBUTOLOL [Concomitant]
  6. SYNTHROID [Concomitant]
  7. ^ANORIOL^ [Concomitant]
  8. ACETYLSALICYLIC ACID SRT [Concomitant]
  9. CORTEF [Concomitant]

REACTIONS (6)
  - DEHYDRATION [None]
  - DIARRHOEA [None]
  - HYPOTENSION [None]
  - RENAL FAILURE ACUTE [None]
  - RHABDOMYOLYSIS [None]
  - VOMITING [None]
